FAERS Safety Report 24809904 (Version 1)
Quarter: 2025Q1

REPORT INFORMATION
  Report Type: Spontaneous
  Country: US (occurrence: None)
  Receive Date: 20250103
  Receipt Date: 20250103
  Transmission Date: 20250409
  Serious: Yes (Death)
  Sender: FDA-CTU
  Company Number: None

PATIENT
  Age: 89 Year
  Sex: Male

DRUGS (1)
  1. XGEVA [Suspect]
     Active Substance: DENOSUMAB
     Indication: Prostate cancer metastatic
     Dosage: 120/1.7 MG/ML MONTHLY SUBCUTANEOUS?
     Route: 058
     Dates: start: 20240415, end: 20241126

REACTIONS (1)
  - Death [None]

NARRATIVE: CASE EVENT DATE: 20241201
